FAERS Safety Report 21917187 (Version 1)
Quarter: 2023Q1

REPORT INFORMATION
  Report Type: Spontaneous
  Country: US (occurrence: US)
  Receive Date: 20230126
  Receipt Date: 20230126
  Transmission Date: 20230417
  Serious: No
  Sender: FDA-Public Use
  Company Number: US-ALLERGAN-2226272US

PATIENT
  Age: 62 Year
  Sex: Female

DRUGS (12)
  1. BOTOX [Suspect]
     Active Substance: ONABOTULINUMTOXINA
     Indication: Face lift
     Dosage: UNK UNK, SINGLE
     Dates: start: 20220805, end: 20220805
  2. BOTOX [Suspect]
     Active Substance: ONABOTULINUMTOXINA
     Indication: Periorbital swelling
     Dosage: UNK UNK, SINGLE
     Dates: start: 20220802, end: 20220802
  3. BOTOX [Suspect]
     Active Substance: ONABOTULINUMTOXINA
     Dosage: UNK UNK, SINGLE
     Dates: start: 20220802, end: 20220802
  4. BOTOX [Suspect]
     Active Substance: ONABOTULINUMTOXINA
     Dosage: UNK, SINGLE
     Dates: start: 20220802, end: 20220802
  5. BOTOX [Suspect]
     Active Substance: ONABOTULINUMTOXINA
     Dosage: UNK, SINGLE
     Dates: start: 20220802, end: 20220802
  6. CELEBREX [Concomitant]
     Active Substance: CELECOXIB
  7. FISH OIL [Concomitant]
     Active Substance: FISH OIL
  8. ESTRADIOL [Concomitant]
     Active Substance: ESTRADIOL
  9. PANTOPRAZOLE [Concomitant]
     Active Substance: PANTOPRAZOLE
     Indication: Gastrooesophageal reflux disease
  10. TRAZODONE [Concomitant]
     Active Substance: TRAZODONE HYDROCHLORIDE
     Indication: Sleep disorder
  11. METFORMIN [Concomitant]
     Active Substance: METFORMIN HYDROCHLORIDE
  12. HYALURONIC ACID\LIDOCAINE [Concomitant]
     Active Substance: HYALURONIC ACID\LIDOCAINE
     Dosage: 2 ML-2 SYRINGES
     Dates: start: 20220802

REACTIONS (7)
  - Off label use [Unknown]
  - Facial discomfort [Unknown]
  - Asthenopia [Unknown]
  - Dyskinesia [Unknown]
  - Eye swelling [Unknown]
  - Facial pain [Unknown]
  - Drug ineffective for unapproved indication [Unknown]

NARRATIVE: CASE EVENT DATE: 20220801
